FAERS Safety Report 6983211-0 (Version None)
Quarter: 2010Q3

REPORT INFORMATION
  Report Type: 
  Country: None (occurrence: None)
  Receive Date: 20100914
  Receipt Date: 20100802
  Transmission Date: 20110219
  Serious: No
  Sender: FDA-Public Use
  Company Number: US-PFIZER INC-2010082109

PATIENT
  Sex: Female
  Weight: 49.887 kg

DRUGS (6)
  1. LYRICA [Suspect]
     Indication: FIBROMYALGIA
     Dosage: 50 MG, 2X/DAY
  2. LYRICA [Suspect]
     Dosage: 150 MG, 2X/DAY
     Route: 048
  3. CYMBALTA [Concomitant]
     Indication: ANXIETY
     Dosage: UNK, 60 MG DAILY
     Route: 048
     Dates: start: 20100701
  4. CYMBALTA [Concomitant]
     Indication: DEPRESSION
  5. SEROQUEL [Concomitant]
     Indication: ANXIETY
     Dosage: 200 MG, 1X/DAY AT NIGHT
     Route: 048
     Dates: start: 20100714
  6. SEROQUEL [Concomitant]
     Indication: DEPRESSION

REACTIONS (6)
  - DISTURBANCE IN ATTENTION [None]
  - DIZZINESS [None]
  - DRY MOUTH [None]
  - SOMNOLENCE [None]
  - VISION BLURRED [None]
  - WEIGHT INCREASED [None]
